FAERS Safety Report 17983607 (Version 2)
Quarter: 2020Q4

REPORT INFORMATION
  Report Type: Spontaneous
  Country: JP (occurrence: JP)
  Receive Date: 20200706
  Receipt Date: 20201224
  Transmission Date: 20210113
  Serious: Yes (Hospitalization)
  Sender: FDA-Public Use
  Company Number: JP-ELI_LILLY_AND_COMPANY-JP202006013047

PATIENT
  Age: 69 Year
  Sex: Female
  Weight: 62.8 kg

DRUGS (24)
  1. PREDONINE [Suspect]
     Active Substance: PREDNISOLONE
     Dosage: 20 MG, DAILY
     Route: 048
     Dates: start: 20180719, end: 20180731
  2. METHYCOBAL [Concomitant]
     Active Substance: METHYLCOBALAMIN
     Indication: LUMBAR SPINAL STENOSIS
     Dosage: 1500 G
     Dates: end: 20180625
  3. DAIPHEN [Concomitant]
     Active Substance: SULFAMETHOXAZOLE\TRIMETHOPRIM
     Indication: PRODUCT USED FOR UNKNOWN INDICATION
     Dosage: 1 DOSAGE FORM
     Dates: start: 20180621, end: 20180804
  4. LIMAPROST ALFADEX [Concomitant]
     Active Substance: LIMAPROST
     Indication: LUMBAR SPINAL STENOSIS
     Dosage: 15 UNK
     Dates: end: 20180625
  5. UPTRAVI [Suspect]
     Active Substance: SELEXIPAG
     Indication: PULMONARY ARTERIAL HYPERTENSION
     Dosage: 0.4 MG, UNKNOWN
     Route: 048
     Dates: start: 20180615
  6. PREDONINE [Suspect]
     Active Substance: PREDNISOLONE
     Dosage: 10 MG, DAILY
     Route: 048
     Dates: start: 20180824, end: 20180825
  7. AMLODINE [AMLODIPINE BESILATE] [Concomitant]
     Active Substance: AMLODIPINE BESYLATE
     Indication: HYPERTENSION
     Dosage: 20 MG
     Dates: end: 20180913
  8. ADCIRCA [Suspect]
     Active Substance: TADALAFIL
     Indication: PULMONARY ARTERIAL HYPERTENSION
     Dosage: 20 MG, UNKNOWN
     Route: 065
     Dates: start: 20180518
  9. PREDONINE [Suspect]
     Active Substance: PREDNISOLONE
     Indication: SJOGREN^S SYNDROME
     Dosage: 40 MG, DAILY
     Route: 048
     Dates: start: 20180609, end: 20180629
  10. PREDONINE [Suspect]
     Active Substance: PREDNISOLONE
     Indication: PERITONITIS
     Dosage: 30 MG, DAILY
     Route: 048
     Dates: start: 20180630, end: 20180706
  11. PREDONINE [Suspect]
     Active Substance: PREDNISOLONE
     Dosage: 25 MG, DAILY
     Route: 048
     Dates: start: 20180707, end: 20180718
  12. PREDONINE [Suspect]
     Active Substance: PREDNISOLONE
     Dosage: 10 MG, UNKNOWN
     Route: 065
     Dates: start: 20181008, end: 20181009
  13. BENALON [Concomitant]
     Indication: PRODUCT USED FOR UNKNOWN INDICATION
     Dosage: 35 MG
     Dates: end: 20180807
  14. ENDOXAN [CYCLOPHOSPHAMIDE MONOHYDRATE] [Suspect]
     Active Substance: CYCLOPHOSPHAMIDE
     Indication: SJOGREN^S SYNDROME
     Dosage: 800 MG, DAILY
     Route: 042
     Dates: start: 20180626, end: 20180626
  15. PREDNISOLONE. [Suspect]
     Active Substance: PREDNISOLONE
     Indication: SJOGREN^S SYNDROME
     Dosage: 3 MG, DAILY
     Route: 048
     Dates: start: 20180824, end: 20180921
  16. PREDONINE [Suspect]
     Active Substance: PREDNISOLONE
     Dosage: 1.5 MG, DAILY
     Route: 048
     Dates: start: 20180801, end: 20180816
  17. PREDONINE [Suspect]
     Active Substance: PREDNISOLONE
     Dosage: 5 MG, DAILY
     Route: 048
     Dates: start: 20181026
  18. NEXIUM MUPS [ESOMEPRAZOLE MAGNESIUM] [Concomitant]
     Active Substance: ESOMEPRAZOLE MAGNESIUM
     Indication: PRODUCT USED FOR UNKNOWN INDICATION
     Dosage: 10 MG
     Dates: start: 20180516
  19. VOLIBRIS [Concomitant]
     Active Substance: AMBRISENTAN
     Indication: PULMONARY ARTERIAL HYPERTENSION
     Dosage: 5 MG
     Dates: start: 20180512
  20. PREDONINE [Suspect]
     Active Substance: PREDNISOLONE
     Dosage: 15 MG, DAILY
     Route: 048
     Dates: start: 20180817, end: 20180823
  21. PREDONINE [Suspect]
     Active Substance: PREDNISOLONE
     Dosage: UNK, UNKNOWN
     Route: 065
     Dates: start: 20181026, end: 20190404
  22. ENDOXAN [CYCLOPHOSPHAMIDE MONOHYDRATE] [Suspect]
     Active Substance: CYCLOPHOSPHAMIDE
     Dosage: 600 MG, DAILY
     Route: 042
     Dates: start: 20180724, end: 20180724
  23. GRANISETRON [Concomitant]
     Active Substance: GRANISETRON
     Indication: PRODUCT USED FOR UNKNOWN INDICATION
     Dosage: 3 MG
     Dates: start: 20180626, end: 20180626
  24. ROCALTROL [Concomitant]
     Active Substance: CALCITRIOL
     Indication: PRODUCT USED FOR UNKNOWN INDICATION
     Dosage: 0.25 MG
     Dates: start: 20180824

REACTIONS (33)
  - Taste disorder [Recovered/Resolved]
  - Steroid diabetes [Recovered/Resolved]
  - Hypertension [Recovering/Resolving]
  - Influenza [Recovered/Resolved]
  - Cytomegalovirus infection [Recovered/Resolved]
  - Coating in mouth [Recovering/Resolving]
  - Bacterial infection [Recovered/Resolved]
  - Oedema [Recovering/Resolving]
  - Steroid diabetes [Recovered/Resolved]
  - Peritonitis [Recovered/Resolved]
  - Tinea infection [Recovering/Resolving]
  - White blood cell count decreased [Recovered/Resolved]
  - Hypokalaemia [Recovered/Resolved]
  - White blood cell count decreased [Recovered/Resolved]
  - Ascites [Recovering/Resolving]
  - Zinc deficiency [Recovered/Resolved]
  - Cytomegalovirus infection [Recovered/Resolved]
  - Blood creatinine increased [Recovered/Resolved]
  - Neutrophil count decreased [Recovered/Resolved]
  - Cough [Recovered/Resolved]
  - Deep vein thrombosis [Recovering/Resolving]
  - Hypoproteinaemia [Recovered/Resolved]
  - Oedema [Recovering/Resolving]
  - Anaemia [Recovered/Resolved]
  - White blood cell count decreased [Recovered/Resolved]
  - Oedema peripheral [Unknown]
  - Thalamus haemorrhage [Recovered/Resolved with Sequelae]
  - Dermatophytosis of nail [Recovered/Resolved]
  - Urinary tract infection [Recovered/Resolved]
  - Back pain [Recovering/Resolving]
  - Diarrhoea [Recovered/Resolved]
  - Large intestine perforation [Recovered/Resolved with Sequelae]
  - Decreased appetite [Recovered/Resolved]

NARRATIVE: CASE EVENT DATE: 20180616
